FAERS Safety Report 4477378-6 (Version None)
Quarter: 2004Q4

REPORT INFORMATION
  Report Type: 
  Country: None (occurrence: None)
  Receive Date: 20041013
  Receipt Date: 20040924
  Transmission Date: 20050328
  Serious: Yes (Life-Threatening, Hospitalization, Disabling)
  Sender: FDA-Public Use
  Company Number: EWC040940807

PATIENT
  Age: 70 Year
  Sex: Female

DRUGS (2)
  1. ZYPREXA [Suspect]
     Indication: DEMENTIA ALZHEIMER'S TYPE
     Dosage: 5 MG/2 DAY
     Dates: start: 20030404, end: 20040914
  2. PERINDOPRIL [Concomitant]

REACTIONS (1)
  - CEREBRAL HAEMORRHAGE [None]
